FAERS Safety Report 5118560-4 (Version None)
Quarter: 2006Q3

REPORT INFORMATION
  Report Type: 
  Country: None (occurrence: None)
  Receive Date: 20060907
  Receipt Date: 20060912
  Transmission Date: 20061208
  Serious: Yes (Life-Threatening, Hospitalization, Other)
  Sender: FDA-Public Use
  Company Number: RENA-11675

PATIENT
  Age: 54 Year
  Sex: Male

DRUGS (6)
  1. RENAGEL [Suspect]
     Indication: HYPERPHOSPHATAEMIA
     Dosage: 1.6 G DAILY PO
     Route: 048
     Dates: start: 20031209, end: 20060113
  2. EUPANTOL [Concomitant]
  3. FONZYLANE [Concomitant]
  4. AMLOR [Concomitant]
  5. RENITEC [Concomitant]
  6. EPOGEN [Concomitant]

REACTIONS (7)
  - ARTERIOVENOUS FISTULA THROMBOSIS [None]
  - DRUG INTERACTION [None]
  - EROSIVE DUODENITIS [None]
  - GASTROINTESTINAL HAEMORRHAGE [None]
  - HAEMOGLOBIN DECREASED [None]
  - SHOCK HAEMORRHAGIC [None]
  - ULCER [None]
